FAERS Safety Report 7571531-0 (Version None)
Quarter: 2011Q2

REPORT INFORMATION
  Report Type: 
  Country: None (occurrence: None)
  Receive Date: 20110624
  Receipt Date: 20110621
  Transmission Date: 20111010
  Serious: No
  Sender: FDA-Public Use
  Company Number: US-TEVA-287660USA

PATIENT
  Sex: Female
  Weight: 52.21 kg

DRUGS (4)
  1. CLARITIN [Concomitant]
     Indication: HYPERSENSITIVITY
  2. PLAN B ONE-STEP [Suspect]
     Indication: POST COITAL CONTRACEPTION
     Dosage: 1.5 MILLIGRAM;
     Route: 048
     Dates: start: 20110613, end: 20110613
  3. CYTOMEL [Concomitant]
     Indication: AUTOIMMUNE THYROIDITIS
  4. SYNTHROID [Concomitant]
     Indication: HYPOTHYROIDISM

REACTIONS (3)
  - HEADACHE [None]
  - NAUSEA [None]
  - MENSTRUATION IRREGULAR [None]
